FAERS Safety Report 5972277-2 (Version None)
Quarter: 2008Q4

REPORT INFORMATION
  Report Type: 
  Country: None (occurrence: None)
  Receive Date: 20081201
  Receipt Date: 20080218
  Transmission Date: 20090506
  Serious: No
  Sender: FDA-Public Use
  Company Number: US-TEVA-167729USA

PATIENT
  Sex: Female

DRUGS (3)
  1. SALBUTAMOL SULFATE INHALATION, 0.09 MG [Suspect]
     Indication: ASTHMA
     Dosage: 1 PUFF BEFORE SPORTS AND 40 MIN. INTO THE GAME AS NEEDED
     Route: 055
     Dates: start: 20071201
  2. MONTELUKAST SODIUM [Concomitant]
  3. RABEPRAZOLE SODIUM [Concomitant]

REACTIONS (4)
  - ASTHMA [None]
  - DRUG INEFFECTIVE [None]
  - NON-CARDIAC CHEST PAIN [None]
  - RASH [None]
